FAERS Safety Report 10239245 (Version 1)
Quarter: 2014Q2

REPORT INFORMATION
  Report Type: Spontaneous
  Country: US (occurrence: None)
  Receive Date: 20140613
  Receipt Date: 20140613
  Transmission Date: 20141212
  Serious: No
  Sender: FDA-Public Use
  Company Number: None

PATIENT
  Age: 24 Year
  Sex: Female
  Weight: 70.76 kg

DRUGS (1)
  1. SUBOXONE [Suspect]
     Indication: DRUG WITHDRAWAL SYNDROME
     Route: 048
     Dates: start: 20130305, end: 20130310

REACTIONS (1)
  - Drug ineffective [None]
